FAERS Safety Report 17852438 (Version 3)
Quarter: 2020Q4

REPORT INFORMATION
  Report Type: Report from Study
  Country: US (occurrence: US)
  Receive Date: 20200603
  Receipt Date: 20201029
  Transmission Date: 20210113
  Serious: No
  Sender: FDA-Public Use
  Company Number: NVSC2020US153450

PATIENT
  Sex: Male

DRUGS (2)
  1. COSENTYX [Suspect]
     Active Substance: SECUKINUMAB
     Indication: PSORIASIS
     Dosage: 300 MG (ONCE A WEEK FO 5 WEEKS AND THEN Q 4 WEEKS)
     Route: 058
     Dates: start: 202003
  2. COSENTYX [Suspect]
     Active Substance: SECUKINUMAB
     Dosage: 300 MG (ONCE A WEEK FOR 5 WEEKS THEN Q 4 WEEKS)
     Route: 058

REACTIONS (6)
  - Cough [Unknown]
  - Dyspnoea [Unknown]
  - Productive cough [Unknown]
  - Haemoglobin decreased [Unknown]
  - Psoriasis [Recovering/Resolving]
  - Pruritus [Recovering/Resolving]
